FAERS Safety Report 7864369-8 (Version None)
Quarter: 2011Q4

REPORT INFORMATION
  Report Type: 
  Country: None (occurrence: None)
  Receive Date: 20111028
  Receipt Date: 20111026
  Transmission Date: 20120403
  Serious: Yes (Death)
  Sender: FDA-Public Use
  Company Number: US-ASTELLAS-2011US007059

PATIENT
  Sex: Male

DRUGS (3)
  1. ERLOTINIB HYDROCHLORIDE [Suspect]
     Indication: BRAIN NEOPLASM MALIGNANT
     Dosage: 150 MG, UID/QD
     Route: 048
     Dates: start: 20110711
  2. PRILOSEC [Concomitant]
     Indication: PRODUCT USED FOR UNKNOWN INDICATION
     Dosage: 20 MG, UNKNOWN/D
     Route: 065
  3. KEPPRA [Concomitant]
     Indication: PRODUCT USED FOR UNKNOWN INDICATION
     Dosage: 250 MG, UNKNOWN/D
     Route: 065

REACTIONS (2)
  - DEATH [None]
  - OFF LABEL USE [None]
